FAERS Safety Report 11466278 (Version 1)
Quarter: 2015Q3

REPORT INFORMATION
  Report Type: Spontaneous
  Country: US (occurrence: US)
  Receive Date: 20150907
  Receipt Date: 20150907
  Transmission Date: 20151125
  Serious: No
  Sender: FDA-Public Use
  Company Number: PHEH2015US017332

PATIENT
  Age: 88 Year
  Sex: Female
  Weight: 116 kg

DRUGS (1)
  1. AFINITOR [Suspect]
     Active Substance: EVEROLIMUS
     Indication: BREAST CANCER
     Dosage: 5 MG, QD
     Route: 048

REACTIONS (3)
  - Lip oedema [Unknown]
  - Oedema mouth [Unknown]
  - Decreased appetite [Unknown]
